FAERS Safety Report 4883442-X (Version None)
Quarter: 2006Q1

REPORT INFORMATION
  Report Type: 
  Country: None (occurrence: None)
  Receive Date: 20060118
  Receipt Date: 20060110
  Transmission Date: 20060701
  Serious: Yes (Other)
  Sender: FDA-Public Use
  Company Number: 2006AP00143

PATIENT
  Age: 57 Year
  Sex: Male

DRUGS (2)
  1. DIPRIVAN [Suspect]
     Indication: INDUCTION OF ANAESTHESIA
     Dosage: 1 AMPULE
     Route: 042
     Dates: start: 20051017, end: 20051017
  2. DIPRIVAN [Suspect]
     Indication: MAINTENANCE OF ANAESTHESIA
     Dosage: 1 AMPULE
     Route: 042
     Dates: start: 20051017, end: 20051017

REACTIONS (6)
  - BRADYCARDIA [None]
  - ERYTHEMA OF EYELID [None]
  - GENERALISED OEDEMA [None]
  - LYMPHOCYTE STIMULATION TEST POSITIVE [None]
  - SHOCK [None]
  - VOMITING [None]
